FAERS Safety Report 6863437-7 (Version None)
Quarter: 2010Q3

REPORT INFORMATION
  Report Type: 
  Country: None (occurrence: None)
  Receive Date: 20100719
  Receipt Date: 20100706
  Transmission Date: 20110219
  Serious: Yes (Hospitalization, Other)
  Sender: FDA-Public Use
  Company Number: 2010AP001402

PATIENT
  Age: 71 Year
  Sex: Female

DRUGS (1)
  1. AMLODIPINE BESYLATE [Suspect]
     Dosage: 135 MG; PO
     Route: 048

REACTIONS (6)
  - HAEMATOCRIT INCREASED [None]
  - HYPONATRAEMIA [None]
  - HYPOTENSION [None]
  - OLIGURIA [None]
  - OVERDOSE [None]
  - RESPIRATORY FAILURE [None]
